FAERS Safety Report 14933626 (Version 4)
Quarter: 2018Q3

REPORT INFORMATION
  Report Type: Report from Study
  Country: ES (occurrence: ES)
  Receive Date: 20180524
  Receipt Date: 20180828
  Transmission Date: 20181010
  Serious: Yes (Other)
  Sender: FDA-Public Use
  Company Number: ES-TEVA-2018-ES-894542

PATIENT
  Age: 21 Year
  Sex: Female

DRUGS (7)
  1. BUSULFAN. [Suspect]
     Active Substance: BUSULFAN
     Indication: BONE MARROW CONDITIONING REGIMEN
     Dosage: 1 MG/KG DAILY; 1 MG/KG/6H AT DAYS ?7 TO ?4
     Route: 065
  2. CICLOSPORIN [Suspect]
     Active Substance: CYCLOSPORINE
     Indication: PROPHYLAXIS AGAINST GRAFT VERSUS HOST DISEASE
     Dosage: UNK
     Route: 065
  3. METHOTREXATE SODIUM. [Suspect]
     Active Substance: METHOTREXATE SODIUM
     Indication: PROPHYLAXIS AGAINST GRAFT VERSUS HOST DISEASE
     Dosage: DAYS +1, +3, +6 AND +11
     Route: 065
  4. URSODESOXYCHOLIC ACID [Suspect]
     Active Substance: URSODIOL
     Indication: PROPHYLAXIS
     Dosage: UNK
     Route: 065
  5. BLINATUMOMAB [Suspect]
     Active Substance: BLINATUMOMAB
     Indication: ACUTE LYMPHOCYTIC LEUKAEMIA
     Route: 065
     Dates: start: 201505
  6. METHOTREXATE SODIUM. [Suspect]
     Active Substance: METHOTREXATE SODIUM
     Indication: PROPHYLAXIS
     Route: 037
  7. CYCLOPHOSPHAMIDE. [Suspect]
     Active Substance: CYCLOPHOSPHAMIDE
     Indication: BONE MARROW CONDITIONING REGIMEN
     Dosage: 60 MG/KG DAILY;
     Route: 065

REACTIONS (7)
  - Stomatitis [Unknown]
  - Cytomegalovirus infection [Unknown]
  - Acute lymphocytic leukaemia recurrent [Unknown]
  - Escherichia urinary tract infection [Unknown]
  - Device related infection [Unknown]
  - Neoplasm recurrence [Unknown]
  - Hypoproteinaemia [Unknown]

NARRATIVE: CASE EVENT DATE: 201602
